FAERS Safety Report 7762775-3 (Version None)
Quarter: 2011Q3

REPORT INFORMATION
  Report Type: 
  Country: None (occurrence: None)
  Receive Date: 20110920
  Receipt Date: 20110914
  Transmission Date: 20111222
  Serious: Yes (Other)
  Sender: FDA-Public Use
  Company Number: JP-PFIZER INC-2011217370

PATIENT
  Age: 75 Year
  Sex: Male

DRUGS (1)
  1. MIGLITOL [Suspect]
     Dosage: 75 MG, 1X/DAY
     Route: 048
     Dates: start: 20101014, end: 20110404

REACTIONS (1)
  - HEPATIC FUNCTION ABNORMAL [None]
